FAERS Safety Report 12658922 (Version 1)
Quarter: 2016Q3

REPORT INFORMATION
  Report Type: Spontaneous
  Country: GB (occurrence: GB)
  Receive Date: 20160817
  Receipt Date: 20160817
  Transmission Date: 20161109
  Serious: Yes (Hospitalization)
  Sender: FDA-Public Use
  Company Number: GB-DEXPHARM-20161764

PATIENT
  Age: 64 Year
  Sex: Female

DRUGS (4)
  1. AMOXICILLIN. [Suspect]
     Active Substance: AMOXICILLIN
     Dosage: DAILY DOSE: 1500 MG MILLGRAM(S) EVERY DAYS
     Dates: start: 20160310, end: 20160517
  2. OMEPRAZOLE. [Suspect]
     Active Substance: OMEPRAZOLE
     Dosage: DOES NOT TAKE EVERY DAY
  3. CYCLIZINE [Concomitant]
     Active Substance: CYCLIZINE
     Dosage: UP TO THREE TIMES A DAY
     Dates: start: 20160623
  4. ATORVASTATIN [Concomitant]
     Active Substance: ATORVASTATIN
     Dosage: DAILY DOSE: 40 MG MILLGRAM(S) EVERY DAYS

REACTIONS (1)
  - Tubulointerstitial nephritis [Unknown]

NARRATIVE: CASE EVENT DATE: 201604
